FAERS Safety Report 12620915 (Version 3)
Quarter: 2016Q3

REPORT INFORMATION
  Report Type: Spontaneous
  Country: US (occurrence: US)
  Receive Date: 20160804
  Receipt Date: 20160808
  Transmission Date: 20161109
  Serious: No
  Sender: FDA-Public Use
  Company Number: US-BEH-2016062130

PATIENT
  Sex: Female
  Weight: 78 kg

DRUGS (23)
  1. VITAMIN C [Concomitant]
     Active Substance: ASCORBIC ACID
  2. VITAMIN D [Concomitant]
     Active Substance: CHOLECALCIFEROL
  3. DIPHENHYDRAMINE. [Concomitant]
     Active Substance: DIPHENHYDRAMINE
  4. LOVAZA [Concomitant]
     Active Substance: OMEGA-3-ACID ETHYL ESTERS
  5. HIZENTRA [Suspect]
     Active Substance: HUMAN IMMUNOGLOBULIN G
     Indication: IMMUNODEFICIENCY COMMON VARIABLE
     Route: 058
     Dates: start: 20151123
  6. LIDOCAINE. [Concomitant]
     Active Substance: LIDOCAINE
  7. FOLIC ACID. [Concomitant]
     Active Substance: FOLIC ACID
  8. VITAMIN B [Concomitant]
     Active Substance: VITAMIN B
  9. EPIPEN [Concomitant]
     Active Substance: EPINEPHRINE
  10. SINGULAIR [Concomitant]
     Active Substance: MONTELUKAST SODIUM
  11. RESTASIS [Concomitant]
     Active Substance: CYCLOSPORINE
  12. ASPIRIN. [Concomitant]
     Active Substance: ASPIRIN
  13. ELLURA [Concomitant]
     Active Substance: DIETARY SUPPLEMENT
  14. ZETIA [Concomitant]
     Active Substance: EZETIMIBE
  15. ZEGERID [Concomitant]
     Active Substance: OMEPRAZOLE\SODIUM BICARBONATE
  16. VAGIFEM [Concomitant]
     Active Substance: ESTRADIOL
  17. LISINOPRIL. [Concomitant]
     Active Substance: LISINOPRIL
  18. CLARITHROMYCIN. [Concomitant]
     Active Substance: CLARITHROMYCIN
  19. GLUCOSAMINE [Concomitant]
     Active Substance: GLUCOSAMINE
  20. ACETAMINOPHEN. [Concomitant]
     Active Substance: ACETAMINOPHEN
  21. VERAPAMIL [Concomitant]
     Active Substance: VERAPAMIL HYDROCHLORIDE
  22. MULTIVITAMIN [Concomitant]
     Active Substance: VITAMINS
  23. OYSTER SHELL [Concomitant]
     Active Substance: OSTREA EDULIS SHELL

REACTIONS (1)
  - Injection site erythema [Unknown]
